FAERS Safety Report 16730036 (Version 1)
Quarter: 2019Q3

REPORT INFORMATION
  Report Type: Spontaneous
  Country: US (occurrence: US)
  Receive Date: 20190813
  Receipt Date: 20190813
  Transmission Date: 20191005
  Serious: No
  Sender: FDA-Public Use
  Company Number: None

PATIENT

DRUGS (2)
  1. HEPARIN [Suspect]
     Active Substance: HEPARIN SODIUM
     Dosage: INJECTION 5,000 UNITS VIALS
  2. HEPARIN [Suspect]
     Active Substance: HEPARIN SODIUM
     Dosage: INJECTION 1,000 UNITS VIAL

REACTIONS (2)
  - Product appearance confusion [None]
  - Product commingling [None]
